FAERS Safety Report 11688118 (Version 2)
Quarter: 2015Q4

REPORT INFORMATION
  Report Type: Report from Study
  Country: US (occurrence: US)
  Receive Date: 20151030
  Receipt Date: 20151111
  Transmission Date: 20160304
  Serious: Yes (Hospitalization, Other)
  Sender: FDA-Public Use
  Company Number: US-ABBVIE-15P-163-1488599-00

PATIENT
  Age: 47 Year
  Sex: Female

DRUGS (8)
  1. LEVOTHYROXINE. [Concomitant]
     Active Substance: LEVOTHYROXINE
     Indication: PRODUCT USED FOR UNKNOWN INDICATION
     Route: 065
  2. JUNEL [Concomitant]
     Active Substance: ETHINYL ESTRADIOL\NORETHINDRONE ACETATE
     Indication: HAEMORRHAGE
  3. PERCOCET [Concomitant]
     Active Substance: ACETAMINOPHEN\OXYCODONE HYDROCHLORIDE
     Indication: PAIN
     Dosage: 1-2 5/325MG TABLETS EVERY 4-6 HOURS PRN
     Route: 048
     Dates: start: 20150929
  4. TRAZODONE [Concomitant]
     Active Substance: TRAZODONE HYDROCHLORIDE
     Indication: POST-TRAUMATIC STRESS DISORDER
     Dosage: AT NIGHT
     Route: 048
     Dates: start: 2007
  5. JUNEL [Concomitant]
     Active Substance: ETHINYL ESTRADIOL\NORETHINDRONE ACETATE
     Indication: ADENOMYOSIS
     Dosage: 1/20 28 DAY
     Route: 048
     Dates: start: 20150930
  6. LUPRON DEPOT [Suspect]
     Active Substance: LEUPROLIDE ACETATE
     Indication: ENDOMETRIOSIS
     Route: 030
     Dates: start: 1995
  7. FLUOXETINE [Concomitant]
     Active Substance: FLUOXETINE HYDROCHLORIDE
     Indication: POST-TRAUMATIC STRESS DISORDER
     Route: 048
     Dates: start: 2007
  8. CLONOPIN [Concomitant]
     Active Substance: CLONAZEPAM
     Indication: POST-TRAUMATIC STRESS DISORDER
     Route: 048

REACTIONS (9)
  - Post-traumatic stress disorder [Recovering/Resolving]
  - Nephrolithiasis [Recovered/Resolved]
  - Haemorrhage [Recovering/Resolving]
  - Abdominal pain [Recovering/Resolving]
  - Iris disorder [Recovered/Resolved]
  - Adenomyosis [Recovering/Resolving]
  - Gastrointestinal disorder [Not Recovered/Not Resolved]
  - Pneumonitis [Recovered/Resolved]
  - Pain [Not Recovered/Not Resolved]

NARRATIVE: CASE EVENT DATE: 1997
